FAERS Safety Report 14180527 (Version 1)
Quarter: 2017Q4

REPORT INFORMATION
  Report Type: Spontaneous
  Country: US (occurrence: US)
  Receive Date: 20171110
  Receipt Date: 20171110
  Transmission Date: 20180321
  Serious: Yes (Other)
  Sender: FDA-Public Use
  Company Number: US-TARO-2017TAR00948

PATIENT
  Sex: Female
  Weight: 66.21 kg

DRUGS (1)
  1. TERCONAZOLE VAGINAL CREAM 0.4% [Suspect]
     Active Substance: TERCONAZOLE
     Indication: FUNGAL INFECTION
     Dosage: ONE APPLICATOR, 1X/DAY AT BEDTIME
     Route: 067
     Dates: start: 201710, end: 201710

REACTIONS (4)
  - Urinary tract infection [Unknown]
  - Vaginal discharge [Not Recovered/Not Resolved]
  - Vaginal laceration [Unknown]
  - Product quality issue [Recovered/Resolved]

NARRATIVE: CASE EVENT DATE: 2017
